FAERS Safety Report 15562394 (Version 1)
Quarter: 2018Q4

REPORT INFORMATION
  Report Type: Spontaneous
  Country: GB (occurrence: GB)
  Receive Date: 20181029
  Receipt Date: 20181029
  Transmission Date: 20190205
  Serious: Yes (Hospitalization)
  Sender: FDA-Public Use
  Company Number: GB-PFIZER INC-3075443

PATIENT
  Age: 44 Year
  Sex: Female
  Weight: 65 kg

DRUGS (33)
  1. CO-AMOXICLAV [AMOXICILLIN;CLAVULANATE POTASSIUM] [Concomitant]
     Dosage: 625 MG, FOR 2 WEEKS; FREQ: 3 DAY; INTERVAL; 1
     Dates: start: 20150925
  2. PREDNISOLONE. [Concomitant]
     Active Substance: PREDNISOLONE
     Dosage: 3 MG, IN THE MORNING 5 MG/D FROM; FREQ: 1 DAY; INTERVAL: 1
     Route: 048
  3. VITAMIN E /00110501/ [Concomitant]
     Active Substance: TOCOPHEROL
     Dosage: 75 IU, FREQ: 1 DAY: INTERVAL; 1
     Route: 048
  4. CEFTAZIDIME. [Suspect]
     Active Substance: CEFTAZIDIME
     Indication: CYSTIC FIBROSIS
     Dosage: 2 G, 2X/DAY
     Route: 042
     Dates: start: 20151012, end: 20151019
  5. MEROPENEM. [Suspect]
     Active Substance: MEROPENEM
     Dosage: 2 G, 3X/DAY
     Dates: start: 201510, end: 201510
  6. ALLOPURINOL. [Concomitant]
     Active Substance: ALLOPURINOL
     Dosage: 200 MG, FREQ: 1 DAY; INTERVAL; 1
     Route: 048
  7. EZETIMIBE. [Concomitant]
     Active Substance: EZETIMIBE
     Indication: BLOOD CHOLESTEROL INCREASED
     Dosage: 10 MG, TEA TIME; FREQ: 1 DAY; INTERVAL; 1
     Route: 048
  8. METOPROLOL. [Concomitant]
     Active Substance: METOPROLOL
     Dosage: 50 MG, FREQ: 2 DAY; INTERVAL; 1
     Route: 048
  9. SALBUTAMOL [Concomitant]
     Active Substance: ALBUTEROL
     Dosage: 2.5-5 MG NEBULISER
     Route: 055
  10. COLOBREATHE [Concomitant]
     Active Substance: COLISTIMETHATE SODIUM
     Dosage: 6.64 IU, FREQ: 2 DAY; INTERVAL; 1
     Route: 055
  11. CREON [Concomitant]
     Active Substance: PANCRELIPASE AMYLASE\PANCRELIPASE LIPASE\PANCRELIPASE PROTEASE
     Dosage: 25,000 WITH FOOD
     Route: 048
  12. INSULIN [Concomitant]
     Active Substance: INSULIN NOS
     Indication: DIABETES MELLITUS
     Dosage: UNK
  13. RANITIDINE. [Concomitant]
     Active Substance: RANITIDINE
     Dosage: 150 MG, FREQ: 2 DAY; INTERVAL; 1
     Route: 048
  14. SERTRALINE [Concomitant]
     Active Substance: SERTRALINE HYDROCHLORIDE
     Dosage: 50 MG, FREQ: 1 DAY; INTERVAL: 1
     Route: 048
  15. HUMULIN S [Concomitant]
     Dosage: 1 DF, 10/9 UNITS PRE BREAKFAST AST/LUNCH; FREQ: 1 DAY; INTERVAL; 1
     Route: 058
  16. ATORVASTATIN [Concomitant]
     Active Substance: ATORVASTATIN
     Dosage: FREQ: 1 DAY; INTERVAL; 1
     Route: 048
  17. COLISTIMETHATE SODIUM. [Concomitant]
     Active Substance: COLISTIMETHATE SODIUM
     Dosage: 2000000 IU, FREQ: 3 DAY; INTERVAL: 1
     Dates: start: 20151012, end: 20151015
  18. HUMALOG [Concomitant]
     Active Substance: INSULIN LISPRO
     Dosage: 11 IU, PRE EVENING MEAL, FREQ: 1 DAY; INTERVAL: 1
     Route: 058
  19. AZITHROMYCIN ANHYDROUS. [Concomitant]
     Active Substance: AZITHROMYCIN ANHYDROUS
     Dosage: 250 MG, FREQ: 1 WEEK; INTERVAL: 3
     Route: 048
  20. CICLOSPORIN [Concomitant]
     Active Substance: CYCLOSPORINE
     Dosage: 50 MG,FREQ: 2 DAY; INTERVAL; 1
  21. FOLIC ACID. [Concomitant]
     Active Substance: FOLIC ACID
     Dosage: 5 MG, FREQ: 1 WEEK; INTERVAL; 1
     Route: 048
  22. SALBUTAMOL [Concomitant]
     Active Substance: ALBUTEROL
     Dosage: 2 DF, EVOHALER
     Route: 055
  23. SYMBICORT [Concomitant]
     Active Substance: BUDESONIDE\FORMOTEROL FUMARATE DIHYDRATE
     Dosage: 2 DF, TURBOHALER 200/6, FREQ: 2 DAY; INTERVAL; 1
     Route: 055
  24. CINACALCET. [Concomitant]
     Active Substance: CINACALCET
     Dosage: 30 MG,FREQ: 1 DAY; INTERVAL; 1
     Route: 048
  25. MYCOPHENOLATE MOFETIL. [Concomitant]
     Active Substance: MYCOPHENOLATE MOFETIL
     Dosage: 750 MG, FREQ: 2 DAY; INTERVAL; 1
     Route: 048
  26. NYSTATIN. [Concomitant]
     Active Substance: NYSTATIN
     Dosage: 100000 IU
     Route: 048
  27. OMEPRAZOLE. [Concomitant]
     Active Substance: OMEPRAZOLE
     Dosage: 20 MG, FREQ: 2 DAY; INTERVAL; 1
     Route: 048
  28. AVAMYS [Concomitant]
     Active Substance: FLUTICASONE FUROATE
     Dosage: 2 DF, 1 SPARY/ NOSTRIL; FREQ: 1 DAY; INTERVAL; 1
     Route: 045
  29. CO-TRIMOXAZOLE [SULFAMETHOXAZOLE;TRIMETHOPRIM] [Concomitant]
     Dosage: 480 MG, FREQ: 1 DAY; INTERVAL; 1
     Route: 048
  30. FULTIUM D3 [Concomitant]
     Active Substance: CHOLECALCIFEROL
     Dosage: 800 IU, FREQ: 1 DAY; INTERVAL; 1
     Route: 048
  31. NEORAL [Concomitant]
     Active Substance: CYCLOSPORINE
     Dosage: 175 MG, 100 MG IN THE MORNING. 75 MG AT NIGHT; FREQ: 2 DAY; INTERVAL; 1
     Route: 048
  32. CIPROFLOXACIN. [Concomitant]
     Active Substance: CIPROFLOXACIN
     Dosage: 500 MG, FOR 2 WEEKS; FREQ: 2 DAY; INTERVAL: 1
     Dates: start: 20150925
  33. RISEDRONATE [Concomitant]
     Active Substance: RISEDRONATE SODIUM
     Dosage: 35 MG, FREQ: 1 WEEK; INTERVAL; 1
     Route: 048

REACTIONS (5)
  - Toxicity to various agents [Recovered/Resolved]
  - Tardive dyskinesia [Recovered/Resolved]
  - Myoclonus [Recovered/Resolved]
  - Paranoia [Recovered/Resolved]
  - Hallucinations, mixed [Recovered/Resolved]

NARRATIVE: CASE EVENT DATE: 20151012
